FAERS Safety Report 9771693 (Version 1)
Quarter: 2013Q4

REPORT INFORMATION
  Report Type: Spontaneous
  Country: US (occurrence: US)
  Receive Date: 20131219
  Receipt Date: 20131219
  Transmission Date: 20140711
  Serious: No
  Sender: FDA-Public Use
  Company Number: US-BIOGENIDEC-2013BI121124

PATIENT
  Sex: Female

DRUGS (18)
  1. AVONEX [Suspect]
     Indication: MULTIPLE SCLEROSIS
     Route: 030
     Dates: start: 20080128
  2. AMILORIDE HCL [Concomitant]
  3. AVAPRO [Concomitant]
  4. BACLOFEN [Concomitant]
  5. FLONASE [Concomitant]
  6. FUROSEMIDE [Concomitant]
  7. GABAPENTIN [Concomitant]
  8. GLUCOVANCE [Concomitant]
  9. GUAIFENESIN [Concomitant]
  10. LATANOPROST [Concomitant]
  11. LOSARTAN POTASSIUM [Concomitant]
  12. MEDROXYPROGESTERONE ACETATE [Concomitant]
  13. MIRALAX [Concomitant]
  14. NEURONTIN [Concomitant]
  15. SULINDAC [Concomitant]
  16. TIMOLOL MALEATE [Concomitant]
  17. TRAVATAN [Concomitant]
  18. VITAMIN D [Concomitant]

REACTIONS (1)
  - Polycythaemia [Unknown]
